FAERS Safety Report 6292180-0 (Version None)
Quarter: 2009Q3

REPORT INFORMATION
  Report Type: 
  Country: None (occurrence: None)
  Receive Date: 20090731
  Receipt Date: 20090724
  Transmission Date: 20100115
  Serious: Yes (Hospitalization, Other)
  Sender: FDA-Public Use
  Company Number: TR-JNJFOC-20090708822

PATIENT
  Age: 8 Year
  Sex: Male

DRUGS (1)
  1. RISPERIDONE [Suspect]
     Indication: AGITATION
     Route: 065

REACTIONS (6)
  - HEADACHE [None]
  - NAUSEA [None]
  - OFF LABEL USE [None]
  - SINUS ARREST [None]
  - SYNCOPE [None]
  - VOMITING [None]
